FAERS Safety Report 7244556-2 (Version None)
Quarter: 2011Q1

REPORT INFORMATION
  Report Type: 
  Country: None (occurrence: None)
  Receive Date: 20110125
  Receipt Date: 20110120
  Transmission Date: 20110831
  Serious: Yes (Hospitalization)
  Sender: FDA-Public Use
  Company Number: FR-PFIZER INC-2011013714

PATIENT
  Age: 60 Year
  Sex: Male

DRUGS (7)
  1. AVASTIN [Suspect]
     Indication: COLORECTAL CANCER
     Dosage: 455 MG (5 MG/KG)
     Route: 042
     Dates: start: 20101213
  2. FLUOROURACIL [Suspect]
     Indication: COLORECTAL CANCER
     Dosage: UNK
     Route: 042
  3. ELOXATIN [Suspect]
     Indication: COLORECTAL CANCER
     Dosage: UNK
     Route: 042
  4. KARDEGIC [Suspect]
     Dosage: 160 MG, 1X/DAY
     Route: 048
  5. CAMPTOSAR [Suspect]
     Indication: COLORECTAL CANCER
     Dosage: UNK
     Route: 042
     Dates: start: 20101213
  6. BISOPROLOL FUMARATE [Concomitant]
  7. FOLINIC ACID [Concomitant]

REACTIONS (4)
  - ANAEMIA [None]
  - GASTRODUODENAL ULCER [None]
  - MELAENA [None]
  - GASTROINTESTINAL ULCER HAEMORRHAGE [None]
